FAERS Safety Report 8124374-3 (Version None)
Quarter: 2012Q1

REPORT INFORMATION
  Report Type: 
  Country: None (occurrence: None)
  Receive Date: 20120209
  Receipt Date: 20120131
  Transmission Date: 20120608
  Serious: Yes (Hospitalization)
  Sender: FDA-Public Use
  Company Number: US-JNJFOC-20120200571

PATIENT
  Age: 52 Year
  Sex: Male

DRUGS (3)
  1. INVEGA SUSTENNA [Suspect]
     Indication: SCHIZOAFFECTIVE DISORDER
     Route: 030
     Dates: start: 20111201, end: 20120101
  2. VALPROIC ACID [Concomitant]
     Indication: SCHIZOAFFECTIVE DISORDER
     Route: 048
  3. RISPERIDONE [Suspect]
     Indication: SCHIZOAFFECTIVE DISORDER
     Dosage: AT BED
     Route: 048

REACTIONS (2)
  - AGITATION [None]
  - CONDITION AGGRAVATED [None]
